FAERS Safety Report 24359035 (Version 13)
Quarter: 2025Q2

REPORT INFORMATION
  Report Type: Spontaneous
  Country: US (occurrence: US)
  Receive Date: 20240924
  Receipt Date: 20250421
  Transmission Date: 20250716
  Serious: No
  Sender: KARYOPHARM THERAPEUTICS
  Company Number: US-KARYOPHARM-2024KPT001562

PATIENT

DRUGS (14)
  1. XPOVIO [Suspect]
     Active Substance: SELINEXOR
     Indication: Plasma cell myeloma
     Route: 048
     Dates: start: 20240919
  2. XPOVIO [Suspect]
     Active Substance: SELINEXOR
     Route: 048
  3. XARELTO [Concomitant]
     Active Substance: RIVAROXABAN
  4. OMEPRAZOLE [Concomitant]
     Active Substance: OMEPRAZOLE
  5. LOSARTAN [Concomitant]
     Active Substance: LOSARTAN
  6. HYDROCHLOROTHIAZIDE [Concomitant]
     Active Substance: HYDROCHLOROTHIAZIDE
  7. DEXAMETHASONE [Concomitant]
     Active Substance: DEXAMETHASONE
  8. BACTRIM DS [Concomitant]
     Active Substance: SULFAMETHOXAZOLE\TRIMETHOPRIM
  9. AUGMENTIN [Concomitant]
     Active Substance: AMOXICILLIN\CLAVULANATE POTASSIUM
  10. ACYCLOVIR [Concomitant]
     Active Substance: ACYCLOVIR
  11. PRIVIGEN [Concomitant]
     Active Substance: HUMAN IMMUNOGLOBULIN G
  12. KYPROLIS [Concomitant]
     Active Substance: CARFILZOMIB
  13. DOXYCYCLINE HYCLATE [Concomitant]
     Active Substance: DOXYCYCLINE HYCLATE
  14. ESCITALOPRAM OXALATE [Concomitant]
     Active Substance: ESCITALOPRAM OXALATE

REACTIONS (13)
  - Tremor [Unknown]
  - Anxiety [Not Recovered/Not Resolved]
  - Brain fog [Unknown]
  - Depression [Unknown]
  - Chills [Unknown]
  - Malaise [Unknown]
  - Cough [Unknown]
  - Dizziness [Unknown]
  - Nausea [Not Recovered/Not Resolved]
  - Decreased appetite [Unknown]
  - Fatigue [Not Recovered/Not Resolved]
  - Upper respiratory tract infection [Not Recovered/Not Resolved]
  - Product dose omission issue [Unknown]

NARRATIVE: CASE EVENT DATE: 20240101
